FAERS Safety Report 18119437 (Version 1)
Quarter: 2020Q3

REPORT INFORMATION
  Report Type: Spontaneous
  Country: US (occurrence: US)
  Receive Date: 20200806
  Receipt Date: 20200806
  Transmission Date: 20201103
  Serious: Yes (Death)
  Sender: FDA-Public Use
  Company Number: None

PATIENT
  Age: 49 Year
  Sex: Male

DRUGS (10)
  1. DEXAMETHASONE. [Concomitant]
     Active Substance: DEXAMETHASONE
  2. LORAZEPAM. [Concomitant]
     Active Substance: LORAZEPAM
  3. CALCITONIN [Concomitant]
     Active Substance: CALCITONIN
  4. FENTANYL. [Concomitant]
     Active Substance: FENTANYL
  5. SOD CHLORIDE TAB [Concomitant]
  6. NEUPOGEN [Suspect]
     Active Substance: FILGRASTIM
     Indication: THROMBOCYTOPENIA
     Route: 058
  7. GABAPENTIN. [Concomitant]
     Active Substance: GABAPENTIN
  8. ACYCLOVIR. [Concomitant]
     Active Substance: ACYCLOVIR
  9. ALLOPURINOL. [Concomitant]
     Active Substance: ALLOPURINOL
  10. DULOXETINE. [Concomitant]
     Active Substance: DULOXETINE

REACTIONS (1)
  - Death [None]

NARRATIVE: CASE EVENT DATE: 20200805
